FAERS Safety Report 7759323-0 (Version None)
Quarter: 2011Q3

REPORT INFORMATION
  Report Type: 
  Country: None (occurrence: None)
  Receive Date: 20110919
  Receipt Date: 20110912
  Transmission Date: 20111222
  Serious: Yes (Hospitalization, Other)
  Sender: FDA-Public Use
  Company Number: JP-B.I. PHARMACEUTICALS,INC./RIDGEFIELD-2011-BP-20283NB

PATIENT
  Sex: Male
  Weight: 48.4 kg

DRUGS (8)
  1. TORSEMIDE [Concomitant]
     Indication: CARDIAC FAILURE
     Dosage: 4 MG
     Route: 048
     Dates: start: 20110301
  2. EBRANTIL [Concomitant]
     Indication: DYSURIA
     Dosage: 30 MG
     Route: 048
     Dates: start: 20110301
  3. LASIX [Concomitant]
     Indication: CARDIAC FAILURE
     Dosage: 20 MG
     Route: 048
     Dates: start: 20110301
  4. PRADAXA [Suspect]
     Indication: ATRIAL FIBRILLATION
     Dosage: 220 MG
     Route: 048
     Dates: start: 20110729, end: 20110811
  5. UBRETID [Concomitant]
     Indication: DYSURIA
     Dosage: 5 MG
     Route: 048
     Dates: start: 20110301, end: 20110808
  6. SHINLUCK [Concomitant]
     Indication: CONSTIPATION
     Dosage: 5 MG
     Route: 048
     Dates: start: 20110506
  7. GAMOFA D [Concomitant]
     Indication: PROPHYLAXIS AGAINST GASTROINTESTINAL ULCER
     Dosage: 20 MG
     Route: 048
     Dates: start: 20110301
  8. VERAPAMIL HCL [Concomitant]
     Dosage: 120 MG
     Route: 048
     Dates: start: 20110301

REACTIONS (1)
  - INTERSTITIAL LUNG DISEASE [None]
